FAERS Safety Report 6594622-X (Version None)
Quarter: 2010Q1

REPORT INFORMATION
  Report Type: 
  Country: None (occurrence: None)
  Receive Date: 20100222
  Receipt Date: 20090624
  Transmission Date: 20100710
  Serious: No
  Sender: FDA-Public Use
  Company Number: US-BRISTOL-MYERS SQUIBB COMPANY-14677561

PATIENT
  Age: 56 Year
  Sex: Female
  Weight: 91 kg

DRUGS (4)
  1. TAXOL [Suspect]
     Indication: BREAST CANCER STAGE IV
  2. SYNTHROID [Concomitant]
  3. AMITRIPTYLINE HCL [Concomitant]
  4. CLORAZEPATE DIPOTASSIUM [Concomitant]

REACTIONS (2)
  - ARTHRALGIA [None]
  - HYPOAESTHESIA [None]
